FAERS Safety Report 7881606-4 (Version None)
Quarter: 2011Q4

REPORT INFORMATION
  Report Type: 
  Country: None (occurrence: None)
  Receive Date: 20111101
  Receipt Date: 20110523
  Transmission Date: 20120403
  Serious: No
  Sender: FDA-Public Use
  Company Number: US-AMGEN-USASP2011026849

PATIENT
  Sex: Female

DRUGS (10)
  1. LABETALOL HCL [Concomitant]
  2. LOSARTAN POTASSIUM [Concomitant]
  3. LEVOTHYROXINE SODIUM [Concomitant]
  4. ENBREL [Suspect]
     Indication: RHEUMATOID ARTHRITIS
     Dosage: 50 MG, QWK
     Route: 058
     Dates: start: 20110402
  5. AMLODIPINE [Concomitant]
  6. HYDROCHLOROTHIAZIDE [Concomitant]
  7. METHOTREXATE [Concomitant]
  8. NAPROXEN [Concomitant]
  9. METFORMIN HCL [Concomitant]
  10. EFFEXOR [Concomitant]

REACTIONS (2)
  - NASOPHARYNGITIS [None]
  - UPPER RESPIRATORY TRACT INFECTION [None]
